FAERS Safety Report 23576071 (Version 3)
Quarter: 2024Q3

REPORT INFORMATION
  Report Type: Spontaneous
  Country: US (occurrence: US)
  Receive Date: 20240228
  Receipt Date: 20240711
  Transmission Date: 20241017
  Serious: No
  Sender: PFIZER
  Company Number: US-PFIZER INC-202400049965

PATIENT
  Age: 68 Year
  Sex: Female
  Weight: 87.982 kg

DRUGS (2)
  1. PAXLOVID [Suspect]
     Active Substance: NIRMATRELVIR\RITONAVIR
     Indication: COVID-19 treatment
     Dosage: UNK
     Dates: start: 20240211, end: 20240215
  2. LOVASTATIN [Concomitant]
     Active Substance: LOVASTATIN
     Dosage: TAKE DAILY, STOPPED WHEN STARTED PAXLOVID
     Dates: start: 20220101, end: 20240211

REACTIONS (9)
  - Nasal congestion [Unknown]
  - Sinus congestion [Unknown]
  - Asthenia [Unknown]
  - Brain fog [Unknown]
  - Fatigue [Unknown]
  - Feeling abnormal [Not Recovered/Not Resolved]
  - Arthralgia [Unknown]
  - Back pain [Unknown]
  - Therapeutic product effect incomplete [Unknown]

NARRATIVE: CASE EVENT DATE: 20240101
